FAERS Safety Report 11912616 (Version 2)
Quarter: 2016Q1

REPORT INFORMATION
  Report Type: Spontaneous
  Country: NL (occurrence: NL)
  Receive Date: 20160113
  Receipt Date: 20160229
  Transmission Date: 20160526
  Serious: Yes (Hospitalization, Other)
  Sender: FDA-Public Use
  Company Number: NL-AMGEN-NLDSP2016001991

PATIENT
  Age: 78 Year
  Sex: Female

DRUGS (5)
  1. PROLIA [Suspect]
     Active Substance: DENOSUMAB
     Indication: OSTEOPENIA
     Dosage: 60 MG, UNK
     Route: 058
     Dates: start: 20151210
  2. PARACETAMOL [Concomitant]
     Active Substance: ACETAMINOPHEN
  3. PREDNISON [Concomitant]
     Active Substance: PREDNISONE
     Indication: POLYMYALGIA RHEUMATICA
     Dosage: 10 MG, QD
     Route: 048
     Dates: start: 20140815
  4. CELEBREX [Concomitant]
     Active Substance: CELECOXIB
     Indication: OSTEOARTHRITIS
     Dosage: 200 MG, BID
     Route: 048
     Dates: start: 20140818
  5. CALCIUM + VITAMIN D                /01483701/ [Concomitant]
     Active Substance: CALCIUM\VITAMIN D
     Indication: OSTEOPENIA
     Dosage: 800 MG/500IC, QD
     Route: 048
     Dates: start: 20140817

REACTIONS (6)
  - Neuralgia [Unknown]
  - Pain [Not Recovered/Not Resolved]
  - Spinal compression fracture [Unknown]
  - Myalgia [Not Recovered/Not Resolved]
  - Lumbar spinal stenosis [Unknown]
  - Radicular pain [Not Recovered/Not Resolved]

NARRATIVE: CASE EVENT DATE: 20151113
